FAERS Safety Report 10201245 (Version 2)
Quarter: 2014Q2

REPORT INFORMATION
  Report Type: Spontaneous
  Country: FR (occurrence: FR)
  Receive Date: 20140528
  Receipt Date: 20140612
  Transmission Date: 20141212
  Serious: Yes (Other)
  Sender: FDA-Public Use
  Company Number: FR-SA-2014SA068502

PATIENT
  Age: 64 Year
  Sex: Male

DRUGS (18)
  1. AFLIBERCEPT [Suspect]
     Indication: METASTATIC NEOPLASM
     Route: 042
     Dates: start: 20140304, end: 20140304
  2. AFLIBERCEPT [Suspect]
     Indication: METASTATIC NEOPLASM
     Route: 042
     Dates: start: 20140401, end: 20140401
  3. IRINOTECAN [Suspect]
     Indication: METASTATIC NEOPLASM
     Dates: start: 20140304, end: 20140304
  4. IRINOTECAN [Suspect]
     Indication: METASTATIC NEOPLASM
     Dates: start: 20140401, end: 20140401
  5. FLUOROURACIL [Suspect]
     Indication: METASTATIC NEOPLASM
     Dates: start: 20140304, end: 20140304
  6. FLUOROURACIL [Suspect]
     Indication: METASTATIC NEOPLASM
     Dates: start: 20140401, end: 20140401
  7. FOLINIC ACID [Concomitant]
  8. DIAMICRON [Concomitant]
     Route: 048
     Dates: start: 20140403
  9. FUROSEMIDE [Concomitant]
     Route: 048
     Dates: start: 20140403
  10. ACTISKENAN [Concomitant]
     Route: 048
     Dates: start: 20140403
  11. SKENAN [Concomitant]
     Route: 048
     Dates: start: 20140403
  12. TAHOR [Concomitant]
     Route: 048
     Dates: start: 20140403
  13. VICTOZA [Concomitant]
     Route: 058
     Dates: start: 20140403
  14. NATISPRAY [Concomitant]
     Route: 055
     Dates: start: 20140403
  15. BISOPROLOL [Concomitant]
     Route: 048
     Dates: start: 20140403
  16. KARDEGIC [Concomitant]
     Route: 048
     Dates: start: 20140403
  17. TRIATEC [Concomitant]
     Route: 048
  18. GLUCOPHAGE [Concomitant]
     Route: 048
     Dates: end: 20140403

REACTIONS (3)
  - Cardiac failure [Not Recovered/Not Resolved]
  - Dyspnoea [Not Recovered/Not Resolved]
  - Oedema peripheral [Not Recovered/Not Resolved]
